FAERS Safety Report 7617277-1 (Version None)
Quarter: 2011Q3

REPORT INFORMATION
  Report Type: 
  Country: None (occurrence: None)
  Receive Date: 20110718
  Receipt Date: 20110706
  Transmission Date: 20111222
  Serious: Yes (Death, Hospitalization, Other)
  Sender: FDA-Public Use
  Company Number: US-ELI_LILLY_AND_COMPANY-US201106004214

PATIENT
  Sex: Female

DRUGS (1)
  1. EVISTA [Suspect]
     Indication: OSTEOPOROSIS
     Dosage: 60 MG, QD

REACTIONS (5)
  - HIP ARTHROPLASTY [None]
  - COGNITIVE DISORDER [None]
  - DEATH [None]
  - CEREBROVASCULAR ACCIDENT [None]
  - ALTERED STATE OF CONSCIOUSNESS [None]
